FAERS Safety Report 21407331 (Version 1)
Quarter: 2022Q4

REPORT INFORMATION
  Report Type: Report from Study
  Country: CA (occurrence: CA)
  Receive Date: 20221004
  Receipt Date: 20221004
  Transmission Date: 20230113
  Serious: Yes (Other)
  Sender: FDA-Public Use
  Company Number: CA-CELLTRION INC.-2022CA015890

PATIENT

DRUGS (2)
  1. TRUXIMA [Suspect]
     Active Substance: RITUXIMAB-ABBS
     Indication: Autoimmune pancreatitis
     Dosage: UNK
     Dates: start: 202202
  2. TRUXIMA [Suspect]
     Active Substance: RITUXIMAB-ABBS
     Dosage: 1000 MG IV Q2 WEEKS, X2 DOSES (TOTAL 2000 MG)
     Route: 042

REACTIONS (2)
  - Autoimmune pancreatitis [Unknown]
  - Off label use [Unknown]
